FAERS Safety Report 12919336 (Version 1)
Quarter: 2016Q4

REPORT INFORMATION
  Report Type: Spontaneous
  Country: IT (occurrence: IT)
  Receive Date: 20161108
  Receipt Date: 20161108
  Transmission Date: 20170207
  Serious: Yes (Hospitalization, Other)
  Sender: FDA-Public Use
  Company Number: IT-APOTEX-2016AP014018

PATIENT
  Age: 25 Year
  Sex: Female

DRUGS (2)
  1. XANAX [Concomitant]
     Active Substance: ALPRAZOLAM
     Indication: ANXIETY
     Dosage: 0.5 MG, UNK
     Route: 065
  2. PAROXETINA DOC GENERICI [Suspect]
     Active Substance: PAROXETINE HYDROCHLORIDE
     Indication: DEPRESSION
     Dosage: 60 MG, QD
     Route: 048
     Dates: start: 20161008, end: 20161014

REACTIONS (5)
  - Bradycardia [Recovering/Resolving]
  - Asthenia [Recovering/Resolving]
  - Somnolence [Recovering/Resolving]
  - Accidental overdose [Recovering/Resolving]
  - Malnutrition [Recovering/Resolving]

NARRATIVE: CASE EVENT DATE: 20161011
